FAERS Safety Report 5363449-9 (Version None)
Quarter: 2007Q2

REPORT INFORMATION
  Report Type: 
  Country: None (occurrence: None)
  Receive Date: 20070530
  Receipt Date: 20070328
  Transmission Date: 20071010
  Serious: No
  Sender: FDA-Public Use
  Company Number: 2006PV024979

PATIENT
  Age: 55 Year
  Sex: Female
  Weight: 82.5547 kg

DRUGS (8)
  1. BYETTA [Suspect]
     Indication: DIABETES MELLITUS NON-INSULIN-DEPENDENT
     Dosage: 5 MCG;BID;SC ;10 MCG;BID;SC ; 5 MCG;BID;SC
     Route: 058
     Dates: start: 20061001, end: 20061101
  2. BYETTA [Suspect]
     Indication: DIABETES MELLITUS NON-INSULIN-DEPENDENT
     Dosage: 5 MCG;BID;SC ;10 MCG;BID;SC ; 5 MCG;BID;SC
     Route: 058
     Dates: start: 20061101, end: 20070122
  3. BYETTA [Suspect]
     Indication: DIABETES MELLITUS NON-INSULIN-DEPENDENT
     Dosage: 5 MCG;BID;SC ;10 MCG;BID;SC ; 5 MCG;BID;SC
     Route: 058
     Dates: start: 20060901
  4. METFORMIN HCL [Concomitant]
  5. LISINOPRIL [Concomitant]
  6. ZOCOR [Concomitant]
  7. AVANDIA [Concomitant]
  8. METFORMIN HCL [Concomitant]

REACTIONS (13)
  - ABDOMINAL PAIN UPPER [None]
  - DECREASED APPETITE [None]
  - DIARRHOEA [None]
  - DYSGEUSIA [None]
  - EARLY SATIETY [None]
  - FEELING ABNORMAL [None]
  - HEADACHE [None]
  - LIMB INJURY [None]
  - NAUSEA [None]
  - PARAESTHESIA [None]
  - SKIN LACERATION [None]
  - VOMITING [None]
  - WEIGHT DECREASED [None]
